FAERS Safety Report 4817800-6 (Version None)
Quarter: 2005Q4

REPORT INFORMATION
  Report Type: 
  Country: None (occurrence: None)
  Receive Date: 20051031
  Receipt Date: 20051031
  Transmission Date: 20060501
  Serious: Yes (Hospitalization)
  Sender: FDA-Public Use
  Company Number: None

PATIENT
  Age: 95 Year
  Sex: Male
  Weight: 56.246 kg

DRUGS (1)
  1. ACETAMINOPHEN 500MG/ HYDROCODONE 5 MG TABLET [Suspect]
     Indication: PAIN IN EXTREMITY
     Dosage: 1 TABLET PO Q 4 HR PRN PAIN
     Route: 048
     Dates: start: 20050822, end: 20050901

REACTIONS (4)
  - CONFUSIONAL STATE [None]
  - CONSTIPATION [None]
  - DELIRIUM [None]
  - FALL [None]
